FAERS Safety Report 5155001-5 (Version None)
Quarter: 2006Q4

REPORT INFORMATION
  Report Type: 
  Country: None (occurrence: None)
  Receive Date: 20061121
  Receipt Date: 20061013
  Transmission Date: 20070319
  Serious: Yes (Other)
  Sender: FDA-Public Use
  Company Number: BR-ROCHE-467614

PATIENT
  Sex: Female

DRUGS (1)
  1. ROACUTAN [Suspect]
     Indication: DRUG USE FOR UNKNOWN INDICATION
     Dosage: DISCONTINUED ON THE SIXTH MONTH OF THERAPY.
     Route: 048
     Dates: end: 20060615

REACTIONS (4)
  - HERPES VIRUS INFECTION [None]
  - KERATITIS [None]
  - KERATOCONJUNCTIVITIS SICCA [None]
  - ULCERATIVE KERATITIS [None]
